FAERS Safety Report 5344153-X (Version None)
Quarter: 2007Q2

REPORT INFORMATION
  Report Type: 
  Country: None (occurrence: None)
  Receive Date: 20070604
  Receipt Date: 20070524
  Transmission Date: 20071010
  Serious: Yes (Hospitalization)
  Sender: FDA-Public Use
  Company Number: FR-ROCHE-499199

PATIENT
  Age: 56 Year
  Sex: Male
  Weight: 94 kg

DRUGS (2)
  1. CAPECITABINE [Suspect]
     Dosage: FREQUENCY REPORTED AS ^J^. FREQUENCY = 5 DAYS/7 AS PER PROTOCOL.
     Route: 048
     Dates: start: 20061121
  2. OXALIPLATIN [Suspect]
     Dosage: FREQUENCY REPORTED AS ^J^. FREQUENCY = WEEKLY AS PER PROTOCOL.
     Route: 042
     Dates: start: 20061121

REACTIONS (1)
  - ANASTOMOTIC COMPLICATION [None]
